FAERS Safety Report 19040833 (Version 1)
Quarter: 2021Q1

REPORT INFORMATION
  Report Type: Report from Study
  Country: CA (occurrence: CA)
  Receive Date: 20210323
  Receipt Date: 20210323
  Transmission Date: 20210420
  Serious: Yes (Other)
  Sender: FDA-Public Use
  Company Number: CA-JNJFOC-20210329383

PATIENT

DRUGS (1)
  1. REMICADE [Suspect]
     Active Substance: INFLIXIMAB
     Indication: PRODUCT USED FOR UNKNOWN INDICATION
     Route: 042

REACTIONS (6)
  - Blood pressure increased [Recovering/Resolving]
  - Chills [Recovered/Resolved]
  - Infusion related reaction [Recovered/Resolved]
  - Feeling cold [Recovered/Resolved]
  - Respiratory distress [Recovered/Resolved]
  - Erythema [Recovered/Resolved]
